FAERS Safety Report 5514878-1 (Version None)
Quarter: 2007Q4

REPORT INFORMATION
  Report Type: 
  Country: None (occurrence: None)
  Receive Date: 20071113
  Receipt Date: 20061016
  Transmission Date: 20080405
  Serious: No
  Sender: FDA-Public Use
  Company Number: A0620355A

PATIENT
  Age: 47 Year
  Sex: Female

DRUGS (7)
  1. COREG [Suspect]
     Indication: CARDIOMYOPATHY
     Dosage: 12.5MG TWICE PER DAY
     Route: 048
     Dates: start: 20050901
  2. BENICAR [Concomitant]
  3. FORTAL [Concomitant]
  4. VITAMIN D [Concomitant]
  5. TUMS [Concomitant]
  6. RANITIDINE [Concomitant]
  7. GLUCOSAMINE [Concomitant]

REACTIONS (6)
  - ABNORMAL DREAMS [None]
  - FATIGUE [None]
  - HIGH DENSITY LIPOPROTEIN DECREASED [None]
  - INFLUENZA LIKE ILLNESS [None]
  - SOMNOLENCE [None]
  - WEIGHT INCREASED [None]
